FAERS Safety Report 9549067 (Version 3)
Quarter: 2014Q1

REPORT INFORMATION
  Report Type: Report from Study
  Country: CA (occurrence: CA)
  Receive Date: 20130924
  Receipt Date: 20140220
  Transmission Date: 20141002
  Serious: Yes (Hospitalization, Other)
  Sender: FDA-Public Use
  Company Number: CA-ABBVIE-13P-028-1136835-00

PATIENT
  Age: 11 Year
  Sex: Female
  Weight: 37 kg

DRUGS (2)
  1. HUMIRA [Suspect]
     Indication: JUVENILE IDIOPATHIC ARTHRITIS
     Route: 058
     Dates: start: 20130405
  2. HUMIRA [Suspect]
     Indication: UVEITIS
     Route: 058

REACTIONS (3)
  - Blindness [Recovering/Resolving]
  - Uveitis [Recovering/Resolving]
  - Visual impairment [Unknown]
